FAERS Safety Report 25502927 (Version 1)
Quarter: 2025Q3

REPORT INFORMATION
  Report Type: Spontaneous
  Country: GB (occurrence: GB)
  Receive Date: 20250702
  Receipt Date: 20250702
  Transmission Date: 20251021
  Serious: Yes (Other)
  Sender: JUBILANT
  Company Number: None

PATIENT
  Age: 90 Year
  Sex: Female
  Weight: 48 kg

DRUGS (22)
  1. PREGABALIN [Suspect]
     Active Substance: PREGABALIN
     Indication: Product used for unknown indication
     Dosage: 75 MG, 2 TIMES PER DAY
     Route: 065
     Dates: start: 20250618
  2. POLYETHYLENE GLYCOL 3350\POTASSIUM CHLORIDE\SODIUM BICARBONATE\SODIUM [Concomitant]
     Active Substance: POLYETHYLENE GLYCOL 3350\POTASSIUM CHLORIDE\SODIUM BICARBONATE\SODIUM CHLORIDE
     Indication: Product used for unknown indication
     Route: 065
     Dates: start: 20230210
  3. SENNOSIDES [Concomitant]
     Active Substance: SENNOSIDES
     Indication: Product used for unknown indication
     Route: 065
     Dates: start: 20230728, end: 20250407
  4. FERROUS FUMARATE [Concomitant]
     Active Substance: FERROUS FUMARATE
     Indication: Product used for unknown indication
     Route: 065
     Dates: start: 20231218, end: 20250407
  5. OMEPRAZOLE [Concomitant]
     Active Substance: OMEPRAZOLE
     Indication: Product used for unknown indication
     Route: 065
     Dates: start: 20231019
  6. EPI MAX [Concomitant]
     Indication: Product used for unknown indication
     Route: 065
     Dates: start: 20231019
  7. PERINDOPRIL ERBUMINE [Concomitant]
     Active Substance: PERINDOPRIL ERBUMINE
     Indication: Product used for unknown indication
     Route: 065
     Dates: start: 20240411
  8. DICLOFENAC DIETHYLAMINE [Concomitant]
     Active Substance: DICLOFENAC DIETHYLAMINE
     Indication: Product used for unknown indication
     Route: 065
     Dates: start: 20240605
  9. MENTHOL [Concomitant]
     Active Substance: MENTHOL
     Indication: Product used for unknown indication
     Route: 065
     Dates: start: 20240725
  10. LORATADINE [Concomitant]
     Active Substance: LORATADINE
     Indication: Product used for unknown indication
     Route: 065
     Dates: start: 20240731
  11. Q V [Concomitant]
     Indication: Product used for unknown indication
     Route: 065
     Dates: start: 20241214
  12. ACETAMINOPHEN [Concomitant]
     Active Substance: ACETAMINOPHEN
     Indication: Product used for unknown indication
     Route: 065
     Dates: start: 20250110
  13. APRODERM [Concomitant]
     Indication: Product used for unknown indication
     Route: 065
     Dates: start: 20250110
  14. CALCI D [Concomitant]
     Indication: Product used for unknown indication
     Route: 065
     Dates: start: 20250312
  15. DOXAZOSIN [Concomitant]
     Active Substance: DOXAZOSIN MESYLATE
     Indication: Product used for unknown indication
     Route: 065
     Dates: start: 20250407, end: 20250429
  16. DERMOL [CLOBETASOL PROPIONATE] [Concomitant]
     Indication: Product used for unknown indication
     Route: 065
     Dates: start: 20250407
  17. DIORALYTE [CITRIC ACID;GLUCOSE;POTASSIUM CHLORIDE;SODIUM BICARBONATE;S [Concomitant]
     Indication: Product used for unknown indication
     Route: 065
     Dates: start: 20250407, end: 20250414
  18. CLARITHROMYCIN [Concomitant]
     Active Substance: CLARITHROMYCIN
     Indication: Infection
     Route: 065
     Dates: start: 20250603, end: 20250608
  19. 3M CAVILON ANTIFUNGAL [Concomitant]
     Active Substance: MICONAZOLE NITRATE
     Indication: Product used for unknown indication
     Route: 065
     Dates: start: 20250603
  20. OTOMIZE [Concomitant]
     Indication: Product used for unknown indication
     Route: 065
     Dates: start: 20250603, end: 20250610
  21. BETNOVATE [Concomitant]
     Active Substance: BETAMETHASONE
     Indication: Product used for unknown indication
     Route: 065
     Dates: start: 20250609
  22. TRIMETHOPRIM [Concomitant]
     Active Substance: TRIMETHOPRIM
     Indication: Infection
     Route: 065
     Dates: start: 20250618

REACTIONS (4)
  - Vision blurred [Recovered/Resolved]
  - Lip swelling [Recovered/Resolved]
  - Oropharyngeal discomfort [Recovered/Resolved]
  - Balance disorder [Recovered/Resolved]

NARRATIVE: CASE EVENT DATE: 20250620
